FAERS Safety Report 17929318 (Version 1)
Quarter: 2020Q2

REPORT INFORMATION
  Report Type: Spontaneous
  Country: FR (occurrence: FR)
  Receive Date: 20200623
  Receipt Date: 20200623
  Transmission Date: 20200714
  Serious: Yes (Other)
  Sender: FDA-Public Use
  Company Number: NVSC2020FR173521

PATIENT
  Age: 64 Year
  Sex: Female
  Weight: 68 kg

DRUGS (1)
  1. ATORVASTATIN [Suspect]
     Active Substance: ATORVASTATIN
     Indication: DYSLIPIDAEMIA
     Dosage: 10 MG, QD
     Route: 048
     Dates: start: 20191220, end: 20200323

REACTIONS (3)
  - Myalgia [Recovered/Resolved]
  - Tongue oedema [Recovering/Resolving]
  - Oral dysaesthesia [Recovering/Resolving]

NARRATIVE: CASE EVENT DATE: 201912
